FAERS Safety Report 9804717 (Version 1)
Quarter: 2014Q1

REPORT INFORMATION
  Report Type: Spontaneous
  Country: FR (occurrence: FR)
  Receive Date: 20140108
  Receipt Date: 20140108
  Transmission Date: 20141002
  Serious: Yes (Hospitalization, Other)
  Sender: FDA-Public Use
  Company Number: FR-GILEAD-2014-0091220

PATIENT
  Age: 51 Year
  Sex: Male
  Weight: 59 kg

DRUGS (9)
  1. TRUVADA [Suspect]
     Indication: HIV INFECTION
     Dosage: 1 DF, QD
     Route: 048
     Dates: start: 20131203
  2. AMBISOME [Suspect]
     Indication: UVEITIS
     Dosage: 200 MG, QD
     Route: 042
     Dates: start: 20131206, end: 20131220
  3. ANCOTIL [Suspect]
     Indication: UVEITIS
     Dosage: 1500 MG, QID
     Route: 042
     Dates: start: 20131206, end: 20131221
  4. PREZISTA [Concomitant]
     Indication: HIV INFECTION
  5. NORVIR [Concomitant]
     Indication: HIV INFECTION
  6. ISENTRESS [Concomitant]
     Indication: HIV INFECTION
  7. NICOPATCH [Concomitant]
     Indication: PRODUCT USED FOR UNKNOWN INDICATION
  8. BACTRIM [Concomitant]
     Indication: PRODUCT USED FOR UNKNOWN INDICATION
  9. SKENAN LP [Concomitant]
     Indication: PRODUCT USED FOR UNKNOWN INDICATION

REACTIONS (2)
  - Renal failure acute [Recovering/Resolving]
  - Anaemia [Recovering/Resolving]
